FAERS Safety Report 4722030-2 (Version None)
Quarter: 2005Q3

REPORT INFORMATION
  Report Type: 
  Country: None (occurrence: None)
  Receive Date: 20050722
  Receipt Date: 20050315
  Transmission Date: 20060218
  Serious: Yes (Other)
  Sender: FDA-Public Use
  Company Number: JP-ROCHE-399352

PATIENT
  Age: 74 Year
  Sex: Female

DRUGS (2)
  1. TAMIFLU [Suspect]
     Route: 048
     Dates: start: 20050228, end: 20050303
  2. COCARL [Concomitant]
     Route: 048
     Dates: start: 20050228, end: 20050301

REACTIONS (4)
  - CARDIAC FAILURE [None]
  - CARDIOMEGALY [None]
  - DYSPNOEA [None]
  - RESPIRATORY FAILURE [None]
